FAERS Safety Report 5060333-5 (Version None)
Quarter: 2006Q3

REPORT INFORMATION
  Report Type: 
  Country: None (occurrence: None)
  Receive Date: 20060718
  Receipt Date: 20060627
  Transmission Date: 20061208
  Serious: No
  Sender: FDA-Public Use
  Company Number: US200606005727

PATIENT
  Age: 44 Year
  Sex: Female

DRUGS (1)
  1. CYMBALTA [Suspect]
     Dosage: 30 MG
     Dates: start: 20060101, end: 20060101

REACTIONS (3)
  - FEELING ABNORMAL [None]
  - HEPATIC ENZYME INCREASED [None]
  - NAUSEA [None]
